FAERS Safety Report 11900345 (Version 1)
Quarter: 2016Q1

REPORT INFORMATION
  Report Type: Spontaneous
  Country: US (occurrence: US)
  Receive Date: 20160108
  Receipt Date: 20160108
  Transmission Date: 20160526
  Serious: No
  Sender: FDA-Public Use
  Company Number: US-ABBVIE-15P-163-1474401-00

PATIENT
  Sex: Female

DRUGS (5)
  1. IRON [Suspect]
     Active Substance: IRON
     Indication: PRODUCT USED FOR UNKNOWN INDICATION
     Route: 065
  2. MARTHA STEWART ESSENTIALS MULTIVITAMINS [Concomitant]
     Indication: PRODUCT USED FOR UNKNOWN INDICATION
  3. VIEKIRA PAK [Suspect]
     Active Substance: DASABUVIR\OMBITASVIR\PARITAPREVIR\RITONAVIR
     Indication: HEPATITIS C
     Route: 048
     Dates: end: 20150702
  4. CAFFEINE. [Suspect]
     Active Substance: CAFFEINE
     Indication: PRODUCT USED FOR UNKNOWN INDICATION
     Route: 065
  5. FISH OIL [Concomitant]
     Active Substance: FISH OIL
     Indication: PRODUCT USED FOR UNKNOWN INDICATION

REACTIONS (13)
  - Bone disorder [Unknown]
  - Dizziness [Unknown]
  - Toothache [Unknown]
  - Scratch [Unknown]
  - Skin haemorrhage [Unknown]
  - Malaise [Unknown]
  - Disturbance in attention [Unknown]
  - Vertigo [Unknown]
  - Hypotension [Unknown]
  - Sarcoidosis [Unknown]
  - Fatigue [Unknown]
  - Blood glucose decreased [Unknown]
  - Contusion [Unknown]
